FAERS Safety Report 6018481-9 (Version None)
Quarter: 2008Q4

REPORT INFORMATION
  Report Type: 
  Country: None (occurrence: None)
  Receive Date: 20081223
  Receipt Date: 20081203
  Transmission Date: 20090506
  Serious: Yes (Death, Hospitalization)
  Sender: FDA-Public Use
  Company Number: US-PFIZER INC-2008157897

PATIENT
  Sex: Male
  Weight: 58.059 kg

DRUGS (1)
  1. LIPITOR [Suspect]
     Dates: start: 20020101

REACTIONS (2)
  - DEATH [None]
  - ILL-DEFINED DISORDER [None]
